FAERS Safety Report 8112167-2 (Version None)
Quarter: 2012Q1

REPORT INFORMATION
  Report Type: 
  Country: None (occurrence: None)
  Receive Date: 20120203
  Receipt Date: 20120123
  Transmission Date: 20120608
  Serious: Yes (Hospitalization, Other)
  Sender: FDA-Public Use
  Company Number: SE-JNJFOC-20120100939

PATIENT
  Age: 41 Year
  Sex: Male

DRUGS (3)
  1. HUMIRA [Suspect]
     Indication: COLITIS ULCERATIVE
     Dates: start: 20080812, end: 20080101
  2. REMICADE [Suspect]
     Route: 042
     Dates: start: 20070601, end: 20071001
  3. REMICADE [Suspect]
     Indication: COLITIS ULCERATIVE
     Route: 042
     Dates: start: 20060904, end: 20070601

REACTIONS (6)
  - EMBOLISM [None]
  - ENTEROCOLITIS HAEMORRHAGIC [None]
  - COLON CANCER METASTATIC [None]
  - BLOOD DISORDER [None]
  - LIVER DISORDER [None]
  - THROMBOSIS [None]
